FAERS Safety Report 15801442 (Version 1)
Quarter: 2019Q1

REPORT INFORMATION
  Report Type: Spontaneous
  Country: US (occurrence: US)
  Receive Date: 20190104
  Receipt Date: 20190104
  Transmission Date: 20190417
  Serious: No
  Sender: FDA-Public Use
  Company Number: None

PATIENT
  Age: 29 Year
  Sex: Female

DRUGS (1)
  1. GLATIRAMER ACETATE (12/BOX) [Suspect]
     Active Substance: GLATIRAMER ACETATE

REACTIONS (1)
  - Nausea [None]

NARRATIVE: CASE EVENT DATE: 20180103
